FAERS Safety Report 18769727 (Version 1)
Quarter: 2021Q1

REPORT INFORMATION
  Report Type: Spontaneous
  Country: FR (occurrence: FR)
  Receive Date: 20210121
  Receipt Date: 20210121
  Transmission Date: 20210419
  Serious: Yes (Other)
  Sender: FDA-Public Use
  Company Number: FR-TEVA-2021-FR-1870321

PATIENT
  Age: 68 Year
  Sex: Male

DRUGS (3)
  1. LIPTRUZET [Concomitant]
     Active Substance: ATORVASTATIN CALCIUM\EZETIMIBE
     Dates: start: 202011
  2. COTRIMOXAZOLE [Suspect]
     Active Substance: SULFAMETHOXAZOLE\TRIMETHOPRIM
     Indication: PROSTATITIS
     Dosage: 800 MG/160 MG?1 DF (DOSAGE FORM) IN THE MORNING AND 1 DF IN THE EVENING ONE WEEK PER MONTH FOR ONE Y
     Dates: start: 2020
  3. BRILIQUE [Concomitant]
     Active Substance: TICAGRELOR
     Dates: start: 202011

REACTIONS (6)
  - Swelling of eyelid [Recovered/Resolved]
  - Oral mucosal eruption [Recovered/Resolved]
  - Intentional product use issue [Unknown]
  - Rash [Recovered/Resolved]
  - Lip swelling [Recovered/Resolved]
  - Erythema [Recovered/Resolved]

NARRATIVE: CASE EVENT DATE: 20210110
